FAERS Safety Report 12463835 (Version 1)
Quarter: 2016Q2

REPORT INFORMATION
  Report Type: Spontaneous
  Country: US (occurrence: None)
  Receive Date: 20160613
  Receipt Date: 20160613
  Transmission Date: 20160815
  Serious: Yes (Hospitalization)
  Sender: FDA-Public Use
  Company Number: None

PATIENT
  Age: 60 Year
  Sex: Female
  Weight: 109.5 kg

DRUGS (12)
  1. ASPIRIN. [Concomitant]
     Active Substance: ASPIRIN
  2. DIGOXIN. [Concomitant]
     Active Substance: DIGOXIN
  3. FUROSEMIDE. [Concomitant]
     Active Substance: FUROSEMIDE
  4. GLIPIZIDE. [Concomitant]
     Active Substance: GLIPIZIDE
  5. MUCINEX [Concomitant]
     Active Substance: GUAIFENESIN
  6. PROTONIX [Concomitant]
     Active Substance: PANTOPRAZOLE SODIUM
  7. NITROSTAT [Concomitant]
     Active Substance: NITROGLYCERIN
  8. KCL [Concomitant]
     Active Substance: POTASSIUM CHLORIDE
  9. APIXABAN, 5 MG [Suspect]
     Active Substance: APIXABAN
     Indication: ATRIAL FIBRILLATION
     Route: 048
  10. ADVAIR HFA [Concomitant]
     Active Substance: FLUTICASONE PROPIONATE\SALMETEROL XINAFOATE
  11. ATORVASTATIN [Concomitant]
     Active Substance: ATORVASTATIN
  12. DUONEBS [Concomitant]

REACTIONS (4)
  - Anaemia [None]
  - Haemorrhage [None]
  - Chronic gastritis [None]
  - Diverticulum [None]

NARRATIVE: CASE EVENT DATE: 20160511
